FAERS Safety Report 23911743 (Version 3)
Quarter: 2024Q3

REPORT INFORMATION
  Report Type: Spontaneous
  Country: US (occurrence: US)
  Receive Date: 20240528
  Receipt Date: 20240817
  Transmission Date: 20241016
  Serious: No
  Sender: SANOFI AVENTIS
  Company Number: US-SANOFI-02062280

PATIENT
  Age: 76 Year
  Sex: Female

DRUGS (2)
  1. LANTUS SOLOSTAR [Suspect]
     Active Substance: INSULIN GLARGINE
     Indication: Type 2 diabetes mellitus
     Dosage: 45 IU, BID
     Route: 058
     Dates: start: 2021
  2. LANTUS SOLOSTAR [Suspect]
     Active Substance: INSULIN GLARGINE
     Dosage: 42 IU, BID
     Route: 058

REACTIONS (3)
  - Eye disorder [Unknown]
  - Off label use [Unknown]
  - Product storage error [Unknown]

NARRATIVE: CASE EVENT DATE: 20210101
